APPROVED DRUG PRODUCT: OLMESARTAN MEDOXOMIL
Active Ingredient: OLMESARTAN MEDOXOMIL
Strength: 5MG
Dosage Form/Route: TABLET;ORAL
Application: A207480 | Product #001
Applicant: AMNEAL EU LTD
Approved: Jul 11, 2023 | RLD: No | RS: No | Type: DISCN